FAERS Safety Report 14567025 (Version 2)
Quarter: 2018Q2

REPORT INFORMATION
  Report Type: Spontaneous
  Country: US (occurrence: US)
  Receive Date: 20180223
  Receipt Date: 20180426
  Transmission Date: 20180711
  Serious: Yes (Hospitalization)
  Sender: FDA-Public Use
  Company Number: US-JNJFOC-20180231045

PATIENT
  Age: 58 Year
  Sex: Male

DRUGS (13)
  1. WARFARIN [Suspect]
     Active Substance: WARFARIN
     Indication: THROMBOSIS
     Dosage: 5 MG TABLET, 1.5 TABLET DAILY
     Route: 048
     Dates: end: 201411
  2. PLAVIX [Suspect]
     Active Substance: CLOPIDOGREL BISULFATE
     Indication: PRODUCT USED FOR UNKNOWN INDICATION
     Route: 065
     Dates: end: 201411
  3. WARFARIN [Suspect]
     Active Substance: WARFARIN
     Indication: PERIPHERAL VASCULAR DISORDER
     Dosage: 5 MG TABLET, 1.5 TABLET DAILY
     Route: 048
     Dates: end: 201411
  4. WARFARIN [Suspect]
     Active Substance: WARFARIN
     Indication: PERIPHERAL VASCULAR DISORDER
     Route: 048
     Dates: end: 201505
  5. XARELTO [Suspect]
     Active Substance: RIVAROXABAN
     Indication: DEEP VEIN THROMBOSIS
     Route: 048
     Dates: start: 2016, end: 20170324
  6. ASPIRIN. [Suspect]
     Active Substance: ASPIRIN
     Indication: PRODUCT USED FOR UNKNOWN INDICATION
     Route: 065
     Dates: end: 201411
  7. WARFARIN [Suspect]
     Active Substance: WARFARIN
     Indication: PERIPHERAL VASCULAR DISORDER
     Route: 048
     Dates: end: 201612
  8. XARELTO [Suspect]
     Active Substance: RIVAROXABAN
     Indication: DEEP VEIN THROMBOSIS
     Route: 048
     Dates: start: 20140905, end: 201411
  9. XARELTO [Suspect]
     Active Substance: RIVAROXABAN
     Indication: DEEP VEIN THROMBOSIS
     Route: 048
     Dates: start: 2015, end: 20150906
  10. XARELTO [Suspect]
     Active Substance: RIVAROXABAN
     Indication: DEEP VEIN THROMBOSIS
     Route: 048
     Dates: end: 201505
  11. WARFARIN [Suspect]
     Active Substance: WARFARIN
     Indication: THROMBOSIS
     Route: 048
     Dates: end: 201505
  12. WARFARIN [Suspect]
     Active Substance: WARFARIN
     Indication: THROMBOSIS
     Route: 048
     Dates: end: 201612
  13. XARELTO [Suspect]
     Active Substance: RIVAROXABAN
     Indication: DEEP VEIN THROMBOSIS
     Route: 048
     Dates: start: 20160323, end: 201612

REACTIONS (4)
  - Myocardial infarction [Recovering/Resolving]
  - Gastrointestinal haemorrhage [Unknown]
  - Epistaxis [Unknown]
  - Haemoptysis [Unknown]

NARRATIVE: CASE EVENT DATE: 201411
